FAERS Safety Report 7437206-3 (Version None)
Quarter: 2011Q2

REPORT INFORMATION
  Report Type: 
  Country: None (occurrence: None)
  Receive Date: 20110426
  Receipt Date: 20110421
  Transmission Date: 20111010
  Serious: Yes (Other)
  Sender: FDA-Public Use
  Company Number: US-BRISTOL-MYERS SQUIBB COMPANY-15689888

PATIENT

DRUGS (2)
  1. RISPERDAL [Suspect]
  2. ABILIFY [Suspect]

REACTIONS (1)
  - SYDENHAM'S CHOREA [None]
